FAERS Safety Report 24204024 (Version 1)
Quarter: 2024Q3

REPORT INFORMATION
  Report Type: Report from Study
  Country: US (occurrence: US)
  Receive Date: 20240813
  Receipt Date: 20240813
  Transmission Date: 20241017
  Serious: Yes (Hospitalization, Other)
  Sender: RANBAXY
  Company Number: US-SUN PHARMACEUTICAL INDUSTRIES LTD-2024R1-461860

PATIENT
  Age: 44 Year
  Sex: Female

DRUGS (1)
  1. BUPROPION [Suspect]
     Active Substance: BUPROPION
     Indication: Product used for unknown indication
     Dosage: 13.5 MILLIGRAM
     Route: 048

REACTIONS (4)
  - Hypotension [Unknown]
  - Overdose [Unknown]
  - Seizure [Unknown]
  - Tachycardia [Unknown]
